FAERS Safety Report 21812753 (Version 1)
Quarter: 2023Q1

REPORT INFORMATION
  Report Type: Report from Study
  Country: US (occurrence: US)
  Receive Date: 20230103
  Receipt Date: 20230103
  Transmission Date: 20230417
  Serious: No
  Sender: FDA-Public Use
  Company Number: US-ABBVIE-4205093

PATIENT
  Sex: Female

DRUGS (2)
  1. ORIAHNN [Suspect]
     Active Substance: ELAGOLIX SODIUM\ESTRADIOL\NORETHINDRONE
     Indication: Product used for unknown indication
     Dosage: 300-1-0.5MG CAPSULE- TAKE 1 MORNING CAPSULE IN AM AND 1 EVENING CAPSULE IN PM
     Route: 048
  2. ORIAHNN [Suspect]
     Active Substance: ELAGOLIX SODIUM\ESTRADIOL\NORETHINDRONE
     Indication: Product used for unknown indication
     Dosage: 300-1-0.5MG CAPSULE- TAKE 1 MORNING CAPSULE IN AM AND 1 EVENING CAPSULE IN PM
     Route: 048

REACTIONS (2)
  - Drug interaction [Recovered/Resolved]
  - Feeling abnormal [Recovered/Resolved]
